FAERS Safety Report 18552498 (Version 1)
Quarter: 2020Q4

REPORT INFORMATION
  Report Type: Spontaneous
  Country: US (occurrence: US)
  Receive Date: 20201127
  Receipt Date: 20201127
  Transmission Date: 20210114
  Serious: No
  Sender: FDA-Public Use
  Company Number: US-ALKEM LABORATORIES LIMITED-US-ALKEM-2020-05985

PATIENT
  Age: 83 Year
  Sex: Female

DRUGS (1)
  1. COLCHICINE. [Suspect]
     Active Substance: COLCHICINE
     Indication: CUTANEOUS CALCIFICATION
     Dosage: 0.6 MILLIGRAM, TID
     Route: 065

REACTIONS (1)
  - Drug ineffective [Unknown]
